FAERS Safety Report 5877493-6 (Version None)
Quarter: 2008Q3

REPORT INFORMATION
  Report Type: 
  Country: None (occurrence: None)
  Receive Date: 20080911
  Receipt Date: 20080902
  Transmission Date: 20090109
  Serious: Yes (Hospitalization)
  Sender: FDA-Public Use
  Company Number: GB-RANBAXY-2008RR-17756

PATIENT

DRUGS (4)
  1. FUROSEMIDE TABLETS BP 40MG [Suspect]
     Indication: HYPERTENSION
     Dosage: 20 MG, BID
  2. PERINDOPRIL ERBUMINE [Concomitant]
     Indication: HYPERTENSION
     Dosage: 2 MG, QD
  3. DOXAZOSIN [Concomitant]
     Indication: HYPERTENSION
     Dosage: 4 MG, BID
  4. DOXAZOSIN [Concomitant]
     Dosage: 8 MG, BID

REACTIONS (2)
  - AORTIC DISSECTION [None]
  - AUTONOMIC DYSREFLEXIA [None]
